FAERS Safety Report 11274424 (Version 1)
Quarter: 2015Q3

REPORT INFORMATION
  Report Type: Not Available
  Country: AU (occurrence: AU)
  Receive Date: 20150715
  Receipt Date: 20150715
  Transmission Date: 20151125
  Serious: Yes (Other)
  Sender: FDA-Public Use
  Company Number: AU-MUNDIPHARMA DS AND PHARMACOVIGILANCE-GBR-2015-0029480

PATIENT
  Age: 85 Year
  Sex: Female
  Weight: 57 kg

DRUGS (2)
  1. TARGIN 10/5MG [Suspect]
     Active Substance: NALOXONE HYDROCHLORIDE\OXYCODONE HYDROCHLORIDE
     Indication: PRODUCT USED FOR UNKNOWN INDICATION
     Dosage: UNK
     Route: 048
     Dates: end: 20150501
  2. MORPHINE SULFATE. [Suspect]
     Active Substance: MORPHINE SULFATE
     Indication: PRODUCT USED FOR UNKNOWN INDICATION
     Dosage: UNK
     Route: 042
     Dates: start: 20150429, end: 20150501

REACTIONS (1)
  - Lip swelling [Unknown]

NARRATIVE: CASE EVENT DATE: 20150501
